FAERS Safety Report 7885596-X (Version None)
Quarter: 2011Q4

REPORT INFORMATION
  Report Type: 
  Country: None (occurrence: None)
  Receive Date: 20111102
  Receipt Date: 20110624
  Transmission Date: 20120403
  Serious: No
  Sender: FDA-Public Use
  Company Number: US-AMGEN-USASP2011032446

PATIENT
  Age: 63 Year
  Sex: Female
  Weight: 100.68 kg

DRUGS (18)
  1. OMEPRAZOLE [Concomitant]
     Dosage: 20 MG, UNK
  2. CELEXA [Concomitant]
     Dosage: 10 MG, UNK
  3. ENBREL [Suspect]
     Indication: PRODUCT USED FOR UNKNOWN INDICATION
     Dosage: 25 MG, 2 TIMES/WK
  4. CENTRUM SILVER                     /01292501/ [Concomitant]
  5. ATENOLOL [Concomitant]
     Dosage: 25 MG, UNK
  6. CAPTOPRIL [Concomitant]
     Dosage: 12.5 MG, UNK
  7. FOLIC ACID [Concomitant]
     Dosage: 1 MG, UNK
  8. OXAZEPAM [Concomitant]
     Dosage: 10 MG, UNK
  9. CALCIUM +D                         /00188401/ [Concomitant]
  10. METHOTREXAT                        /00113801/ [Concomitant]
     Dosage: 2.5 MG, UNK
  11. ASPIRIN [Concomitant]
     Dosage: 81 MG, UNK
  12. MAGNESIUM [Concomitant]
     Dosage: 250 MG, UNK
  13. PREDNISONE [Concomitant]
     Dosage: 1 MG, UNK
  14. LIPITOR [Concomitant]
     Dosage: 10 MG, UNK
  15. SUPER B COMPL [Concomitant]
  16. GARLIC                             /01570501/ [Concomitant]
     Dosage: 400 MG, UNK
  17. VITAMIN E                          /00110501/ [Concomitant]
     Dosage: 400 UNK, UNK
  18. IBUPROFEN [Concomitant]
     Dosage: 200 MG, UNK

REACTIONS (3)
  - SPUTUM DISCOLOURED [None]
  - PHARYNGITIS [None]
  - COUGH [None]
